FAERS Safety Report 8021102-7 (Version None)
Quarter: 2012Q1

REPORT INFORMATION
  Report Type: 
  Country: None (occurrence: None)
  Receive Date: 20120104
  Receipt Date: 20111227
  Transmission Date: 20120608
  Serious: Yes (Hospitalization)
  Sender: FDA-Public Use
  Company Number: US-SANOFI-AVENTIS-2011SA079962

PATIENT
  Age: 62 Year
  Sex: Female
  Weight: 86.18 kg

DRUGS (4)
  1. LANTUS [Suspect]
     Dosage: 50 UNITS IN THE MORNING AND 73 UNITS IN THE EVENING
     Route: 058
     Dates: start: 20110101
  2. LANTUS [Suspect]
     Dosage: 50 UNITS IN THE MORNING AND 73 UNITS IN THE EVENING
     Route: 058
     Dates: end: 20110601
  3. LANTUS [Suspect]
     Dosage: DOSE:20 UNIT(S)
     Route: 058
     Dates: start: 20110601
  4. NOVOLOG [Concomitant]

REACTIONS (2)
  - CATHETERISATION CARDIAC [None]
  - BLOOD GLUCOSE INCREASED [None]
